FAERS Safety Report 17984407 (Version 1)
Quarter: 2020Q3

REPORT INFORMATION
  Report Type: Spontaneous
  Country: NO (occurrence: NO)
  Receive Date: 20200706
  Receipt Date: 20200706
  Transmission Date: 20201103
  Serious: Yes (Death, Other)
  Sender: FDA-Public Use
  Company Number: NO-ROCHE-2635690

PATIENT
  Age: 63 Year
  Sex: Female

DRUGS (9)
  1. NITRAZEPAM [Concomitant]
     Active Substance: NITRAZEPAM
     Route: 048
  2. ATENOLOL. [Concomitant]
     Active Substance: ATENOLOL
     Indication: HYPERTENSION
     Route: 048
  3. OXYNORM [Concomitant]
     Active Substance: OXYCODONE HYDROCHLORIDE
     Indication: MIGRAINE
     Dosage: UNKNOWN DOSAGE
     Route: 048
  4. AFIPRAN [Concomitant]
     Active Substance: METOCLOPRAMIDE HYDROCHLORIDE
     Indication: NAUSEA
     Dosage: 10 MG 0?3 TIMES DAILY
     Route: 048
  5. SELEXID [MECILLINAM] [Concomitant]
     Active Substance: AMDINOCILLIN
     Indication: URINARY TRACT INFECTION
     Route: 048
  6. ELIQUIS [Concomitant]
     Active Substance: APIXABAN
     Indication: RENAL VEIN THROMBOSIS
     Dosage: THE PATIENT STOPPED TAKING ELIQUIS ON HER OWN INITIATVE 2 DAYS BEFORE THE STROKE DUE TO MACROHEMATUR
     Route: 048
     Dates: start: 20200519
  7. XELODA [Suspect]
     Active Substance: CAPECITABINE
     Indication: COLON CANCER
     Route: 048
     Dates: start: 20200428, end: 20200522
  8. IMODIUM [Concomitant]
     Active Substance: LOPERAMIDE HYDROCHLORIDE
     Indication: DIARRHOEA
     Dosage: 2 TABLETS UP TO 4 TIMES DAILY
     Route: 048
  9. PARACET [PARACETAMOL] [Concomitant]
     Indication: PAIN
     Dosage: 1 G 0?3 TIMES DAILY
     Route: 048

REACTIONS (2)
  - Renal vein thrombosis [Unknown]
  - Cerebrovascular accident [Fatal]

NARRATIVE: CASE EVENT DATE: 20200523
